FAERS Safety Report 18981582 (Version 1)
Quarter: 2021Q1

REPORT INFORMATION
  Report Type: Spontaneous
  Country: US (occurrence: US)
  Receive Date: 20210308
  Receipt Date: 20210308
  Transmission Date: 20210420
  Serious: No
  Sender: FDA-Public Use
  Company Number: US-ASTRAZENECA-2021A084421

PATIENT
  Sex: Female
  Weight: 44.5 kg

DRUGS (1)
  1. BYDUREON [Suspect]
     Active Substance: EXENATIDE
     Indication: DIABETES MELLITUS
     Route: 058
     Dates: start: 201905

REACTIONS (4)
  - Irritability [Unknown]
  - Device issue [Unknown]
  - Anxiety [Unknown]
  - Product use issue [Unknown]
